FAERS Safety Report 8349407-0 (Version None)
Quarter: 2012Q2

REPORT INFORMATION
  Report Type: 
  Country: None (occurrence: None)
  Receive Date: 20120510
  Receipt Date: 20120507
  Transmission Date: 20120825
  Serious: Yes (Other)
  Sender: FDA-Public Use
  Company Number: US-AMGEN-USASP2011000142

PATIENT
  Sex: Male

DRUGS (2)
  1. OPHTHALMOLOGICALS [Concomitant]
     Indication: GLAUCOMA
     Route: 047
  2. ENBREL [Suspect]
     Indication: ANKYLOSING SPONDYLITIS
     Dates: start: 20070703

REACTIONS (2)
  - UVEITIS [None]
  - INTRAOCULAR PRESSURE INCREASED [None]
